FAERS Safety Report 18105544 (Version 3)
Quarter: 2020Q3

REPORT INFORMATION
  Report Type: Spontaneous
  Country: US (occurrence: US)
  Receive Date: 20200804
  Receipt Date: 20200929
  Transmission Date: 20201103
  Serious: Yes (Death)
  Sender: FDA-Public Use
  Company Number: US-JNJFOC-20200739128

PATIENT
  Age: 6 Month
  Sex: Female

DRUGS (1)
  1. BENADRYL [Suspect]
     Active Substance: DIPHENHYDRAMINE HYDROCHLORIDE
     Indication: SLEEP DISORDER THERAPY
     Route: 048
     Dates: start: 20190122, end: 20190124

REACTIONS (4)
  - Product administration error [Fatal]
  - Product use in unapproved indication [Fatal]
  - Unresponsive to stimuli [Fatal]
  - Overdose [Fatal]

NARRATIVE: CASE EVENT DATE: 201901
